FAERS Safety Report 4815298-5 (Version None)
Quarter: 2005Q4

REPORT INFORMATION
  Report Type: 
  Country: None (occurrence: None)
  Receive Date: 20051028
  Receipt Date: 20051021
  Transmission Date: 20060501
  Serious: Yes (Other)
  Sender: FDA-Public Use
  Company Number: GB-MERCK-0510GBR00144

PATIENT
  Age: 57 Year
  Sex: Male
  Weight: 69 kg

DRUGS (1)
  1. ZOCOR [Suspect]
     Indication: HYPERLIPIDAEMIA
     Route: 048
     Dates: start: 20050621, end: 20051005

REACTIONS (2)
  - NEURALGIA [None]
  - PERIPHERAL SENSORY NEUROPATHY [None]
